FAERS Safety Report 5026917-5 (Version None)
Quarter: 2006Q2

REPORT INFORMATION
  Report Type: 
  Country: None (occurrence: None)
  Receive Date: 20060615
  Receipt Date: 20060608
  Transmission Date: 20061013
  Serious: Yes (Other)
  Sender: FDA-Public Use
  Company Number: CA-BRACCO-BDI-008319

PATIENT
  Age: 14 Year
  Sex: Female

DRUGS (3)
  1. CHOLETEC [Suspect]
     Route: 042
     Dates: start: 20060601, end: 20060601
  2. CHOLETEC [Suspect]
     Indication: ABDOMINAL PAIN
     Route: 042
     Dates: start: 20060601, end: 20060601
  3. CHOLETEC [Suspect]
     Indication: LIVER SCAN
     Route: 042
     Dates: start: 20060601, end: 20060601

REACTIONS (1)
  - HYPERSENSITIVITY [None]
